FAERS Safety Report 7382446-5 (Version None)
Quarter: 2011Q1

REPORT INFORMATION
  Report Type: 
  Country: None (occurrence: None)
  Receive Date: 20110329
  Receipt Date: 20110315
  Transmission Date: 20110831
  Serious: Yes (Death, Hospitalization)
  Sender: FDA-Public Use
  Company Number: JP-BAYER-2011-001236

PATIENT
  Sex: Female

DRUGS (6)
  1. AVELOX [Suspect]
     Indication: UPPER RESPIRATORY TRACT INFLAMMATION
     Dosage: 400 MG, QD
     Route: 048
     Dates: start: 20101228, end: 20110101
  2. PARIET [Concomitant]
     Dosage: DAILY DOSE 10 MG
     Route: 048
  3. VESICARE [Concomitant]
     Dosage: DAILY DOSE 5 MG
     Route: 048
  4. AMLODIPINE [Concomitant]
     Dosage: DAILY DOSE 5 MG
     Route: 048
  5. SENNARIDE [Concomitant]
     Dosage: DAILY DOSE 36 MG
     Route: 048
  6. CEROCRAL [Concomitant]
     Dosage: DAILY DOSE 60 MG
     Route: 048

REACTIONS (6)
  - ALANINE AMINOTRANSFERASE INCREASED [None]
  - ASPARTATE AMINOTRANSFERASE INCREASED [None]
  - BLOOD LACTATE DEHYDROGENASE INCREASED [None]
  - BLOOD ALKALINE PHOSPHATASE INCREASED [None]
  - HYPOGLYCAEMIC COMA [None]
  - LIVER DISORDER [None]
